FAERS Safety Report 7421131-8 (Version None)
Quarter: 2011Q2

REPORT INFORMATION
  Report Type: 
  Country: None (occurrence: None)
  Receive Date: 20110408
  Receipt Date: 20110328
  Transmission Date: 20111010
  Serious: Yes (Hospitalization)
  Sender: FDA-Public Use
  Company Number: DKLU1069488

PATIENT
  Age: 8 Month
  Sex: Female

DRUGS (1)
  1. SABRIL [Suspect]
     Indication: EPILEPSY
     Dosage: 1 IN 1 D, ORAL
     Route: 048
     Dates: start: 20100430, end: 20100525

REACTIONS (2)
  - CHOREA [None]
  - CENTRAL NERVOUS SYSTEM LESION [None]
